FAERS Safety Report 25281973 (Version 1)
Quarter: 2025Q2

REPORT INFORMATION
  Report Type: Report from Study
  Country: ZA (occurrence: ZA)
  Receive Date: 20250508
  Receipt Date: 20250508
  Transmission Date: 20250717
  Serious: Yes (Death)
  Sender: ALEXION PHARMACEUTICALS
  Company Number: ZA-AstraZeneca-CH-00864362A

PATIENT
  Age: 69 Year

DRUGS (8)
  1. BUDESONIDE\FORMOTEROL [Suspect]
     Active Substance: BUDESONIDE\FORMOTEROL
     Indication: Asthma
  2. SIMVASTATIN [Concomitant]
     Active Substance: SIMVASTATIN
     Indication: Blood cholesterol
  3. VALSARTAN [Concomitant]
     Active Substance: VALSARTAN
     Indication: Hypertension
  4. ECOTRIN [Concomitant]
     Active Substance: ASPIRIN
  5. Synaleve [Concomitant]
     Indication: Pain
  6. KEPPRA [Concomitant]
     Active Substance: LEVETIRACETAM
     Indication: Epilepsy
  7. LYRICA [Concomitant]
     Active Substance: PREGABALIN
     Indication: Epilepsy
  8. THEOPHYLLINE [Concomitant]
     Active Substance: THEOPHYLLINE
     Indication: Bronchospasm

REACTIONS (1)
  - Death [Fatal]
